FAERS Safety Report 8035992-5 (Version None)
Quarter: 2012Q1

REPORT INFORMATION
  Report Type: 
  Country: None (occurrence: None)
  Receive Date: 20120106
  Receipt Date: 20110728
  Transmission Date: 20120608
  Serious: Yes (Life-Threatening, Hospitalization)
  Sender: FDA-Public Use
  Company Number: ES-023402

PATIENT
  Age: 82 Year
  Sex: Male

DRUGS (1)
  1. CHLORAMBUCIL [Suspect]
     Indication: CHRONIC LYMPHOCYTIC LEUKAEMIA
     Dosage: TABLET 35 MG, 35MG EVERY TWO WEEKS, ORAL
     Route: 048
     Dates: start: 20101124

REACTIONS (11)
  - SEPSIS [None]
  - PLATELET COUNT DECREASED [None]
  - HAEMOPTYSIS [None]
  - HAEMODYNAMIC INSTABILITY [None]
  - NEUTROPENIA [None]
  - LUNG INFECTION [None]
  - RECTAL HAEMORRHAGE [None]
  - PLEURAL EFFUSION [None]
  - HYPOTENSION [None]
  - BACTERAEMIA [None]
  - RESPIRATORY FAILURE [None]
